FAERS Safety Report 25900299 (Version 1)
Quarter: 2025Q4

REPORT INFORMATION
  Report Type: Other
  Country: GB (occurrence: GB)
  Receive Date: 20251009
  Receipt Date: 20251009
  Transmission Date: 20260119
  Serious: Yes (Disabling, Other)
  Sender: LUPIN
  Company Number: None

PATIENT
  Age: 19 Year
  Sex: Male
  Weight: 58 kg

DRUGS (3)
  1. SERTRALINE [Suspect]
     Active Substance: SERTRALINE HYDROCHLORIDE
     Indication: Anxiety
     Dosage: 200 MILLIGRAM
     Route: 065
  2. SERTRALINE [Suspect]
     Active Substance: SERTRALINE HYDROCHLORIDE
     Dosage: UNK, TAPERED FROM 200 MG TO 0 MG
     Route: 065
  3. AGOMELATINE [Concomitant]
     Active Substance: AGOMELATINE
     Indication: Anxiety
     Dosage: UNK
     Route: 065
     Dates: start: 20250415, end: 20250801

REACTIONS (4)
  - Sexual dysfunction [Not Recovered/Not Resolved]
  - Anhedonia [Not Recovered/Not Resolved]
  - Brain fog [Not Recovered/Not Resolved]
  - Blunted affect [Not Recovered/Not Resolved]

NARRATIVE: CASE EVENT DATE: 20250515
